FAERS Safety Report 23257276 (Version 1)
Quarter: 2023Q4

REPORT INFORMATION
  Report Type: Spontaneous
  Country: SE (occurrence: SE)
  Receive Date: 20231204
  Receipt Date: 20231204
  Transmission Date: 20240109
  Serious: Yes (Other)
  Sender: FDA-Public Use
  Company Number: None

PATIENT
  Age: 75 Year
  Sex: Male

DRUGS (6)
  1. AMLODIPINE [Suspect]
     Active Substance: AMLODIPINE BESYLATE
     Indication: Aortic dissection
     Dates: start: 201504, end: 20191127
  2. ENALAPRIL [Suspect]
     Active Substance: ENALAPRIL
     Indication: Aortic dissection
     Dates: start: 201504, end: 20230802
  3. METOPROLOL [Suspect]
     Active Substance: METOPROLOL
     Indication: Aortic dissection
     Dates: start: 201504
  4. BICALUTAMIDE [Concomitant]
     Active Substance: BICALUTAMIDE
     Dates: start: 2015
  5. LEVETIRACETAM [Concomitant]
     Active Substance: LEVETIRACETAM
     Dates: start: 20191230
  6. ATORVASTATIN [Concomitant]
     Active Substance: ATORVASTATIN
     Dates: start: 2018, end: 201905

REACTIONS (2)
  - Hypotension [Recovering/Resolving]
  - Epilepsy [Recovering/Resolving]

NARRATIVE: CASE EVENT DATE: 20190101
